FAERS Safety Report 13718996 (Version 1)
Quarter: 2017Q3

REPORT INFORMATION
  Report Type: Report from Study
  Country: BR (occurrence: BR)
  Receive Date: 20170705
  Receipt Date: 20170705
  Transmission Date: 20171127
  Serious: Yes (Other)
  Sender: FDA-Public Use
  Company Number: PHHY2017BR097698

PATIENT
  Sex: Female
  Weight: 55 kg

DRUGS (3)
  1. QUETIAPINE. [Concomitant]
     Active Substance: QUETIAPINE
     Indication: PRODUCT USED FOR UNKNOWN INDICATION
     Route: 065
  2. EXELON PATCH [Suspect]
     Active Substance: RIVASTIGMINE
     Indication: DEMENTIA ALZHEIMER^S TYPE
     Dosage: 4.6 MG, QD PATCH 5 (CM2)
     Route: 062
  3. EXELON PATCH [Suspect]
     Active Substance: RIVASTIGMINE
     Dosage: 9.5 MG, QD PATCH 10 (CM2)
     Route: 062
     Dates: start: 201702

REACTIONS (9)
  - Amnesia [Unknown]
  - Insomnia [Unknown]
  - Agitation [Unknown]
  - Abdominal discomfort [Unknown]
  - Anxiety [Unknown]
  - Malaise [Recovering/Resolving]
  - Aphasia [Unknown]
  - Restlessness [Unknown]
  - Diarrhoea [Recovered/Resolved]
